FAERS Safety Report 7888872-X (Version None)
Quarter: 2011Q4

REPORT INFORMATION
  Report Type: 
  Country: None (occurrence: None)
  Receive Date: 20111103
  Receipt Date: 20111101
  Transmission Date: 20120403
  Serious: Yes (Life-Threatening, Hospitalization)
  Sender: FDA-Public Use
  Company Number: CN-ABBOTT-10P-035-0665288-00

PATIENT
  Age: 83 Year
  Sex: Male

DRUGS (3)
  1. XUEZHIKANG [Suspect]
     Indication: HYPERLIPIDAEMIA
     Route: 048
     Dates: end: 20100601
  2. FENOFIBRATE [Suspect]
     Indication: HYPERLIPIDAEMIA
     Route: 048
     Dates: start: 20080101, end: 20100808
  3. MELOXICAM [Concomitant]
     Indication: ARTHRALGIA
     Route: 048
     Dates: start: 20100701, end: 20100808

REACTIONS (4)
  - RHABDOMYOLYSIS [None]
  - GASTROINTESTINAL HAEMORRHAGE [None]
  - LIVER DISORDER [None]
  - HYPOGLYCAEMIA [None]
